FAERS Safety Report 16700273 (Version 1)
Quarter: 2019Q3

REPORT INFORMATION
  Report Type: Spontaneous
  Country: FR (occurrence: FR)
  Receive Date: 20190814
  Receipt Date: 20190814
  Transmission Date: 20191004
  Serious: Yes (Hospitalization)
  Sender: FDA-Public Use
  Company Number: FR-PFIZER INC-2019338155

PATIENT
  Age: 32 Year
  Sex: Female
  Weight: 87 kg

DRUGS (11)
  1. CEFEPIME [Suspect]
     Active Substance: CEFEPIME HYDROCHLORIDE
     Indication: BONE MARROW FAILURE
     Dosage: 1 DF, 1X/DAY
     Route: 041
     Dates: start: 20190708, end: 20190711
  2. ZOVIRAX [Suspect]
     Active Substance: ACYCLOVIR
     Indication: ENCEPHALITIS
     Dosage: 1 DF, EVERY 8 HOURS
     Route: 041
     Dates: start: 20190708, end: 20190710
  3. FLAGYL [Suspect]
     Active Substance: METRONIDAZOLE\METRONIDAZOLE HYDROCHLORIDE
     Indication: BONE MARROW FAILURE
     Dosage: 3 DF, 1X/DAY
     Route: 048
     Dates: start: 20190708, end: 20190712
  4. VINCRISTINE HOSPIRA [Suspect]
     Active Substance: VINCRISTINE
     Indication: HODGKIN^S DISEASE
     Dosage: 1.4 MG/M2, SINGLE
     Route: 041
     Dates: start: 20190703, end: 20190703
  5. BLEOMYCINE BELLON [Suspect]
     Active Substance: BLEOMYCIN SULFATE
     Indication: HODGKIN^S DISEASE
     Dosage: 10 MG/M2, 1X/DAY
     Route: 041
     Dates: start: 20190703, end: 20190703
  6. NATULAN [Suspect]
     Active Substance: PROCARBAZINE HYDROCHLORIDE
     Indication: HODGKIN^S DISEASE
     Dosage: 200 MG, 1X/DAY
     Route: 048
     Dates: start: 20190626, end: 20190702
  7. ETOPOPHOS [Suspect]
     Active Substance: ETOPOSIDE PHOSPHATE
     Indication: HODGKIN^S DISEASE
     Dosage: 200 MG/M2, SINGLE
     Route: 041
     Dates: start: 20190626, end: 20190626
  8. DOXORUBICINE ACCORD [Suspect]
     Active Substance: DOXORUBICIN
     Indication: HODGKIN^S DISEASE
     Dosage: 35 MG/M2, 1X/DAY
     Route: 041
     Dates: start: 20190626, end: 20190626
  9. CORTANCYL [Suspect]
     Active Substance: PREDNISONE
     Dosage: 4 DF, 1X/DAY
     Route: 048
     Dates: start: 20190626, end: 20190713
  10. GRANOCYTE [Suspect]
     Active Substance: LENOGRASTIM
     Indication: NEUTROPENIA
     Dosage: 1 DF, 1X/DAY
     Route: 058
     Dates: start: 20190704, end: 20190711
  11. ENDOXAN [CYCLOPHOSPHAMIDE MONOHYDRATE] [Suspect]
     Active Substance: CYCLOPHOSPHAMIDE
     Indication: HODGKIN^S DISEASE
     Dosage: 125 MG/M2, SINGLE
     Route: 041
     Dates: start: 20190626, end: 20190626

REACTIONS (2)
  - Hypoaesthesia [Recovered/Resolved]
  - Paraesthesia [Recovering/Resolving]

NARRATIVE: CASE EVENT DATE: 20190710
